FAERS Safety Report 6817028-4 (Version None)
Quarter: 2010Q3

REPORT INFORMATION
  Report Type: 
  Country: None (occurrence: None)
  Receive Date: 20100706
  Receipt Date: 20100630
  Transmission Date: 20110219
  Serious: Yes (Hospitalization, Other)
  Sender: FDA-Public Use
  Company Number: DE-ROCHE-703260

PATIENT
  Sex: Female
  Weight: 75 kg

DRUGS (8)
  1. HERCEPTIN [Suspect]
     Route: 042
     Dates: start: 20090619, end: 20091101
  2. HERCEPTIN [Suspect]
     Route: 042
     Dates: start: 20100101, end: 20100414
  3. FEMARA [Concomitant]
     Route: 048
     Dates: start: 20091119
  4. ZOLADEX [Concomitant]
     Dates: start: 20091119
  5. CARBOPLATIN [Concomitant]
     Dosage: DOSE: AUC2 WEEKLY, 8 CYCLES
     Dates: start: 20090619, end: 20090814
  6. NAVELBINE [Concomitant]
     Dosage: 11 CYCLES
     Dates: start: 20090619, end: 20091023
  7. AMITRIPTYLINE HCL [Concomitant]
     Indication: DEPRESSION
     Dosage: FOR MORE THAN 2 YEARS
  8. ZOLPIDEM [Concomitant]
     Indication: DEPRESSION
     Dosage: FOR MORE THAN 2 YEARS

REACTIONS (3)
  - AUTOIMMUNE THYROIDITIS [None]
  - CONGESTIVE CARDIOMYOPATHY [None]
  - GOITRE [None]
